FAERS Safety Report 25634179 (Version 1)
Quarter: 2025Q3

REPORT INFORMATION
  Report Type: Spontaneous
  Country: US (occurrence: US)
  Receive Date: 20250801
  Receipt Date: 20250801
  Transmission Date: 20251020
  Serious: No
  Sender: TEVA
  Company Number: US-TEVA-VS-3353327

PATIENT
  Age: 54 Year
  Sex: Female

DRUGS (1)
  1. COPAXONE [Suspect]
     Active Substance: GLATIRAMER ACETATE
     Indication: Product used for unknown indication
     Route: 065

REACTIONS (6)
  - Brain fog [Unknown]
  - Swelling face [Unknown]
  - Pain in extremity [Unknown]
  - Hypersensitivity [Unknown]
  - Arthralgia [Unknown]
  - Chest discomfort [Unknown]
